FAERS Safety Report 21859542 (Version 3)
Quarter: 2023Q1

REPORT INFORMATION
  Report Type: Spontaneous
  Country: US (occurrence: US)
  Receive Date: 20230113
  Receipt Date: 20230124
  Transmission Date: 20230418
  Serious: Yes (Death, Other)
  Sender: FDA-Public Use
  Company Number: US-009507513-2301USA003570

PATIENT
  Age: 41 Year
  Sex: Female

DRUGS (12)
  1. BELSOMRA [Suspect]
     Active Substance: SUVOREXANT
     Route: 048
  2. NORTRIPTYLINE [Suspect]
     Active Substance: NORTRIPTYLINE
  3. QUETIAPINE [Suspect]
     Active Substance: QUETIAPINE
  4. TOPIRAMATE [Suspect]
     Active Substance: TOPIRAMATE
  5. LORAZEPAM [Suspect]
     Active Substance: LORAZEPAM
  6. BUSPIRONE [Suspect]
     Active Substance: BUSPIRONE HYDROCHLORIDE
  7. FLUOXETINE [Suspect]
     Active Substance: FLUOXETINE HYDROCHLORIDE
  8. OLANZAPINE [Suspect]
     Active Substance: OLANZAPINE
  9. VILAZODONE [Suspect]
     Active Substance: VILAZODONE
  10. LINACLOTIDE [Suspect]
     Active Substance: LINACLOTIDE
  11. PROMETHAZINE [Suspect]
     Active Substance: PROMETHAZINE HYDROCHLORIDE
  12. LUBIPROSTONE [Suspect]
     Active Substance: LUBIPROSTONE

REACTIONS (3)
  - Suspected suicide [Fatal]
  - Cardiac arrest [Fatal]
  - Respiratory arrest [Fatal]
